FAERS Safety Report 10070265 (Version 1)
Quarter: 2014Q2

REPORT INFORMATION
  Report Type: Spontaneous
  Country: US (occurrence: None)
  Receive Date: 20140408
  Receipt Date: 20140408
  Transmission Date: 20141212
  Serious: Yes (Hospitalization)
  Sender: FDA-Public Use
  Company Number: FDB-2014-016

PATIENT
  Age: 70 Year
  Sex: Female

DRUGS (3)
  1. TECHNETIUM TC99M GENERATOR [Suspect]
     Indication: SCAN
     Route: 042
     Dates: start: 20140321
  2. TECHNETIUM TC99M GENERATOR [Suspect]
     Indication: GALLBLADDER DISORDER
     Route: 042
     Dates: start: 20140321
  3. INHALER [Concomitant]

REACTIONS (4)
  - Nausea [None]
  - Dyspnoea [None]
  - Vomiting [None]
  - Rash [None]
